FAERS Safety Report 4949487-6 (Version None)
Quarter: 2006Q1

REPORT INFORMATION
  Report Type: 
  Country: None (occurrence: None)
  Receive Date: 20060321
  Receipt Date: 20060313
  Transmission Date: 20060701
  Serious: Yes (Hospitalization)
  Sender: FDA-Public Use
  Company Number: FR-AMGEN-UK172108

PATIENT
  Age: 3 Year

DRUGS (5)
  1. KINERET [Suspect]
     Indication: JUVENILE ARTHRITIS
     Route: 058
  2. OMEPRAZOLE [Suspect]
     Route: 048
  3. CORTICOSTEROID NOS [Concomitant]
     Route: 065
  4. METHYLPREDNISOLONE [Concomitant]
     Route: 065
  5. IMMUNOGLOBULINS [Concomitant]
     Route: 065

REACTIONS (5)
  - C-REACTIVE PROTEIN INCREASED [None]
  - CONDITION AGGRAVATED [None]
  - INFLAMMATION [None]
  - PYREXIA [None]
  - TRANSAMINASES INCREASED [None]
